FAERS Safety Report 8806626 (Version 2)
Quarter: 2013Q3

REPORT INFORMATION
  Report Type: Spontaneous
  Country: GB (occurrence: None)
  Receive Date: 20120919
  Receipt Date: 20130805
  Transmission Date: 20140515
  Serious: Yes (Life-Threatening, Other)
  Sender: FDA-Public Use
  Company Number: 2012AP002908

PATIENT
  Age: 82 Year
  Sex: Female

DRUGS (11)
  1. RAMIPRIL [Suspect]
     Indication: PRODUCT USED FOR UNKNOWN INDICATION
     Dates: start: 20120521
  2. LITHIUM [Suspect]
     Indication: PRODUCT USED FOR UNKNOWN INDICATION
  3. AMLODIPINE (AMLODIPINE) [Concomitant]
  4. BENDROFLUMETHIAZIDE (BENDROFLUMETHIAZIDE) [Concomitant]
  5. DIAZEPAM (DIAZEPAM) [Concomitant]
  6. LEVOTHYROXINE (LEVOTHYROXINE) [Concomitant]
  7. LOFEPRAMINE (LOFEPRAMINE) [Concomitant]
  8. OLANZAPINE (OLANZAPINE) [Concomitant]
  9. PRIADEL /00033702/ (LITHIUM CARBONATE) [Concomitant]
  10. SYMBICORT [Concomitant]
  11. ZOPLICONE (ZOPICLONE) [Concomitant]

REACTIONS (3)
  - Antipsychotic drug level increased [None]
  - Glomerular filtration rate decreased [None]
  - Drug interaction [None]
